FAERS Safety Report 21000377 (Version 1)
Quarter: 2022Q2

REPORT INFORMATION
  Report Type: Spontaneous
  Country: US (occurrence: US)
  Receive Date: 20220623
  Receipt Date: 20220623
  Transmission Date: 20220721
  Serious: Yes (Death, Other)
  Sender: FDA-Public Use
  Company Number: US-SA-SAC20220622001367

PATIENT
  Age: 67 Year
  Sex: Female

DRUGS (1)
  1. ZANTAC [Suspect]
     Active Substance: RANITIDINE HYDROCHLORIDE
     Indication: Hyperchlorhydria
     Dosage: 25 MG, QD
     Route: 065
     Dates: start: 200001, end: 201801

REACTIONS (1)
  - Pancreatic carcinoma stage III [Fatal]

NARRATIVE: CASE EVENT DATE: 20200101
